FAERS Safety Report 4478815-3 (Version None)
Quarter: 2004Q3

REPORT INFORMATION
  Report Type: 
  Country: None (occurrence: None)
  Receive Date: 20040923
  Receipt Date: 20040720
  Transmission Date: 20050211
  Serious: No
  Sender: FDA-Public Use
  Company Number: USA040773205

PATIENT
  Age: 83 Year
  Sex: Female

DRUGS (6)
  1. FORTEO [Suspect]
     Indication: OSTEOPOROSIS
     Dates: start: 20040719
  2. LIBRIUM [Concomitant]
  3. BUTISOL (SECBUTABARBITAL) [Concomitant]
  4. SYNTHROID [Concomitant]
  5. NEURONTIN [Concomitant]
  6. TYLENOL [Concomitant]

REACTIONS (3)
  - ABDOMINAL PAIN UPPER [None]
  - CARDIAC DISORDER [None]
  - NAUSEA [None]
